FAERS Safety Report 10152899 (Version 1)
Quarter: 2014Q2

REPORT INFORMATION
  Report Type: Spontaneous
  Country: US (occurrence: US)
  Receive Date: 20140505
  Receipt Date: 20140505
  Transmission Date: 20141212
  Serious: Yes (Hospitalization)
  Sender: FDA-Public Use
  Company Number: US-GLAXOSMITHKLINE-A1071220A

PATIENT
  Age: 69 Year
  Sex: Male

DRUGS (9)
  1. ADVAIR [Suspect]
     Indication: CHRONIC OBSTRUCTIVE PULMONARY DISEASE
     Dosage: 1PUFF TWICE PER DAY
     Route: 055
     Dates: start: 2011
  2. ASPIRIN [Concomitant]
  3. INHALER [Concomitant]
  4. NEBULIZER [Concomitant]
  5. ANTIBIOTICS [Concomitant]
  6. STEROIDS [Concomitant]
  7. MORPHINE [Concomitant]
  8. OXYCODONE [Concomitant]
  9. PAIN RELIEF [Concomitant]

REACTIONS (8)
  - Spinal fracture [Recovering/Resolving]
  - Pneumonia [Recovered/Resolved]
  - Bladder operation [Unknown]
  - Dysuria [Recovered/Resolved]
  - Dyspnoea [Recovering/Resolving]
  - Back pain [Recovering/Resolving]
  - Local swelling [Recovering/Resolving]
  - Surgery [Unknown]
